FAERS Safety Report 19876491 (Version 1)
Quarter: 2021Q3

REPORT INFORMATION
  Report Type: Other
  Country: JP (occurrence: JP)
  Receive Date: 20210924
  Receipt Date: 20210924
  Transmission Date: 20211014
  Serious: Yes (Other)
  Sender: FDA-Public Use
  Company Number: JP-ROCHE-2876932

PATIENT
  Age: 62 Year
  Sex: Male

DRUGS (3)
  1. AVASTIN [Suspect]
     Active Substance: BEVACIZUMAB
     Route: 041
     Dates: start: 2020
  2. AVASTIN [Suspect]
     Active Substance: BEVACIZUMAB
     Indication: PSEUDOMYXOMA PERITONEI
     Route: 041
     Dates: start: 201809, end: 2019
  3. TIPIRACIL;TRIFLURIDINE [Suspect]
     Active Substance: TIPIRACIL HYDROCHLORIDE\TRIFLURIDINE
     Indication: PSEUDOMYXOMA PERITONEI
     Dosage: ON DAYS 1?5 AND 8?12
     Route: 065
     Dates: start: 201809

REACTIONS (6)
  - Hypoaesthesia [Unknown]
  - Fatigue [Unknown]
  - Decreased appetite [Unknown]
  - Off label use [Unknown]
  - Neutropenia [Unknown]
  - Proteinuria [Unknown]
